FAERS Safety Report 5860190-0 (Version None)
Quarter: 2008Q3

REPORT INFORMATION
  Report Type: 
  Country: None (occurrence: None)
  Receive Date: 20080827
  Receipt Date: 20080818
  Transmission Date: 20090109
  Serious: Yes (Other)
  Sender: FDA-Public Use
  Company Number: US-BAUSCH-2008BL002090

PATIENT
  Age: 47 Year
  Sex: Male
  Weight: 90 kg

DRUGS (2)
  1. OPCON-A [Suspect]
     Indication: EYE IRRITATION
     Route: 047
     Dates: start: 20080504, end: 20080507
  2. VISINE EYE DROPS [Concomitant]
     Route: 047

REACTIONS (17)
  - ABNORMAL SENSATION IN EYE [None]
  - BLEPHAROSPASM [None]
  - CATARACT TRAUMATIC [None]
  - COUGH [None]
  - DEPRESSION [None]
  - EYE IRRITATION [None]
  - HYPERHIDROSIS [None]
  - INTRAOCULAR LENS IMPLANT [None]
  - IRITIS [None]
  - LACRIMATION INCREASED [None]
  - NASOPHARYNGITIS [None]
  - PHARMACEUTICAL PRODUCT COMPLAINT [None]
  - PYREXIA [None]
  - VISION BLURRED [None]
  - VISUAL ACUITY REDUCED [None]
  - VISUAL IMPAIRMENT [None]
  - VITREOUS DETACHMENT [None]
